FAERS Safety Report 7356332-0 (Version None)
Quarter: 2011Q1

REPORT INFORMATION
  Report Type: 
  Country: None (occurrence: None)
  Receive Date: 20110316
  Receipt Date: 20110310
  Transmission Date: 20110831
  Serious: Yes (Hospitalization)
  Sender: FDA-Public Use
  Company Number: FR-ROCHE-765181

PATIENT
  Sex: Male

DRUGS (5)
  1. RIBAVIRIN [Suspect]
     Indication: HEPATITIS C
     Route: 065
     Dates: start: 20100215
  2. NORVIR [Concomitant]
     Dates: start: 20080915
  3. ISENTRESS [Concomitant]
     Dates: start: 20080215
  4. PEGINTERFERON ALFA-2A [Suspect]
     Indication: HEPATITIS C
     Route: 065
     Dates: start: 20100215
  5. PREZISTA [Concomitant]
     Dates: start: 20080215

REACTIONS (1)
  - CATARACT OPERATION [None]
